FAERS Safety Report 9095608 (Version 4)
Quarter: 2013Q1

REPORT INFORMATION
  Report Type: Spontaneous
  Country: JP (occurrence: JP)
  Receive Date: 20130220
  Receipt Date: 20130314
  Transmission Date: 20140127
  Serious: Yes (Hospitalization, Other)
  Sender: FDA-Public Use
  Company Number: PHHY2012JP042653

PATIENT
  Age: 59 Year
  Sex: Male
  Weight: 50 kg

DRUGS (4)
  1. AFINITOR [Suspect]
     Indication: RENAL CELL CARCINOMA
     Dosage: 5 MG, DAILY
     Route: 048
     Dates: start: 20120416, end: 20120514
  2. AFINITOR [Suspect]
     Dosage: 5 MG,QOD
     Route: 048
     Dates: start: 20120525, end: 20120604
  3. CRAVIT [Concomitant]
     Dosage: 250 MG
     Dates: start: 20120521, end: 20120528
  4. TAKEPRON [Concomitant]
     Dosage: 15 MG
     Dates: start: 20120516

REACTIONS (4)
  - Interstitial lung disease [Recovered/Resolved]
  - Rales [Unknown]
  - Pneumonia bacterial [Recovered/Resolved]
  - Stomatitis [Unknown]
